FAERS Safety Report 5927615-3 (Version None)
Quarter: 2008Q4

REPORT INFORMATION
  Report Type: 
  Country: None (occurrence: None)
  Receive Date: 20081021
  Receipt Date: 20081021
  Transmission Date: 20090506
  Serious: Yes (Other)
  Sender: FDA-Public Use
  Company Number: None

PATIENT
  Age: 17 Year
  Sex: Female
  Weight: 58.9676 kg

DRUGS (3)
  1. ORTHO TRI-CYCLEN [Suspect]
     Indication: CONTRACEPTION
     Dosage: ONCE DAILY PO
     Route: 048
     Dates: start: 20080620, end: 20081019
  2. NORGESTIMATE AND ETHINYL ESTRADIOL [Concomitant]
  3. . [Concomitant]

REACTIONS (2)
  - NAUSEA [None]
  - VOMITING [None]
